FAERS Safety Report 14928624 (Version 2)
Quarter: 2018Q2

REPORT INFORMATION
  Report Type: Spontaneous
  Country: DE (occurrence: DE)
  Receive Date: 20180523
  Receipt Date: 20180608
  Transmission Date: 20180711
  Serious: Yes (Other)
  Sender: FDA-Public Use
  Company Number: DE-MYLANLABS-2018M1033461

PATIENT
  Age: 59 Year
  Sex: Female

DRUGS (11)
  1. MELPHALAN. [Suspect]
     Active Substance: MELPHALAN
     Indication: PLASMA CELL MYELOMA
     Dosage: UNK UNK, CYCLE
     Route: 042
  2. PREDNISONE. [Concomitant]
     Active Substance: PREDNISONE
     Dosage: UNK
     Route: 048
  3. MESNA. [Concomitant]
     Active Substance: MESNA
     Indication: PRODUCT USED FOR UNKNOWN INDICATION
     Dosage: ON DAY -3 AND -2 (ALONG WITH IMC REGIMEN)
  4. DEXAMETHASONE. [Concomitant]
     Active Substance: DEXAMETHASONE
     Indication: PLASMA CELL MYELOMA
     Dosage: 1X2MG (VID REGIMEN)
     Route: 048
  5. IDARUBICIN [Suspect]
     Active Substance: IDARUBICIN
     Dosage: ON DAYS -13,-12 AND -11 (IMC REGIMEN)
     Route: 041
  6. ENDOXAN                            /00021102/ [Suspect]
     Active Substance: CYCLOPHOSPHAMIDE
     Indication: HAEMATOPOIETIC STEM CELL MOBILISATION
  7. ENDOXAN                            /00021102/ [Suspect]
     Active Substance: CYCLOPHOSPHAMIDE
     Indication: PLASMA CELL MYELOMA
     Dosage: 60 MG/KG, UNK
     Route: 041
  8. PREDNISONE. [Concomitant]
     Active Substance: PREDNISONE
     Indication: PLASMA CELL MYELOMA
     Dosage: 4 X 60 MG/M2,8 CYCLICAL
     Route: 048
  9. MELPHALAN. [Suspect]
     Active Substance: MELPHALAN
     Dosage: ON DAYS -5, AND -4 (IMC REGIMEN), 8 CYCLICAL
     Route: 041
  10. IDARUBICIN [Suspect]
     Active Substance: IDARUBICIN
     Indication: PLASMA CELL MYELOMA
     Dosage: ON DAYS 1 TO 4, 4X10 MG/M2, 5 CYCLICAL
     Route: 048
  11. VINCRISTINE [Concomitant]
     Active Substance: VINCRISTINE
     Indication: PLASMA CELL MYELOMA
     Dosage: 4X0.4 MG (VID REGIMEN), 5 CYCLICAL
     Route: 042

REACTIONS (3)
  - Mucosal inflammation [Unknown]
  - Haematotoxicity [Unknown]
  - Pyrexia [Unknown]
